FAERS Safety Report 7411810-0 (Version None)
Quarter: 2011Q2

REPORT INFORMATION
  Report Type: 
  Country: None (occurrence: None)
  Receive Date: 20110413
  Receipt Date: 20110128
  Transmission Date: 20111010
  Serious: Yes (Hospitalization)
  Sender: FDA-Public Use
  Company Number: US-BRISTOL-MYERS SQUIBB COMPANY-15517444

PATIENT
  Sex: Male

DRUGS (1)
  1. ERBITUX [Suspect]
     Route: 042
     Dates: start: 20110124, end: 20110129

REACTIONS (4)
  - VOMITING [None]
  - NAUSEA [None]
  - CHEST PAIN [None]
  - DYSPNOEA [None]
